FAERS Safety Report 10249712 (Version 1)
Quarter: 2014Q2

REPORT INFORMATION
  Report Type: Spontaneous
  Country: US (occurrence: US)
  Receive Date: 20140620
  Receipt Date: 20140620
  Transmission Date: 20141212
  Serious: No
  Sender: FDA-Public Use
  Company Number: US-BAYER-2014-091785

PATIENT
  Age: 25 Year
  Sex: Female
  Weight: 113 kg

DRUGS (1)
  1. ALEVE CAPLET [Suspect]
     Dosage: 1 DF, UNK
     Route: 048
     Dates: start: 201404

REACTIONS (1)
  - Therapeutic response changed [Recovered/Resolved]
